FAERS Safety Report 6743199-4 (Version None)
Quarter: 2010Q2

REPORT INFORMATION
  Report Type: 
  Country: None (occurrence: None)
  Receive Date: 20100527
  Receipt Date: 20100517
  Transmission Date: 20101027
  Serious: Yes (Other)
  Sender: FDA-Public Use
  Company Number: PHHY2010US24822

PATIENT
  Sex: Female
  Weight: 58.503 kg

DRUGS (6)
  1. RECLAST [Suspect]
     Indication: OSTEOPOROSIS
     Dosage: 5 MG, YEARLY
     Route: 042
     Dates: start: 20100103
  2. PRAVACHOL [Concomitant]
     Indication: BLOOD CHOLESTEROL INCREASED
     Dosage: 40 MG,
     Route: 048
  3. ALPRAZOLAM [Concomitant]
     Indication: ANXIETY
     Dosage: 0.05 MG, QHS
     Route: 048
     Dates: start: 20090211
  4. DIGOXIN [Concomitant]
     Indication: ATRIAL FIBRILLATION
     Dosage: 0.25 MG,
     Route: 048
     Dates: start: 20070219
  5. ASPIRIN [Concomitant]
     Indication: HYPERTENSION
     Dosage: UNK
     Route: 048
     Dates: start: 20080422
  6. CITRACAL + D [Concomitant]
     Indication: OSTEOPOROSIS
     Dosage: ONE TAB BID
     Route: 048
     Dates: start: 20100215

REACTIONS (7)
  - DECREASED APPETITE [None]
  - DIARRHOEA [None]
  - HEADACHE [None]
  - MALAISE [None]
  - MUSCULOSKELETAL PAIN [None]
  - PARALYSIS [None]
  - SINUS DISORDER [None]
